FAERS Safety Report 22906912 (Version 2)
Quarter: 2023Q4

REPORT INFORMATION
  Report Type: Spontaneous
  Country: FR (occurrence: FR)
  Receive Date: 20230905
  Receipt Date: 20231030
  Transmission Date: 20240109
  Serious: Yes (Hospitalization, Other)
  Sender: FDA-Public Use
  Company Number: None

PATIENT
  Age: 72 Year
  Sex: Female
  Weight: 43 kg

DRUGS (9)
  1. CARBOPLATIN [Suspect]
     Active Substance: CARBOPLATIN
     Indication: Lung adenocarcinoma
     Dosage: 1 DF, CYCLIC (FIRST COURSE)
     Route: 042
     Dates: start: 20230623, end: 20230623
  2. CARBOPLATIN [Suspect]
     Active Substance: CARBOPLATIN
     Dosage: 1 DF, CYCLIC (SECOND COURSE)
     Route: 042
     Dates: start: 20230718, end: 20230718
  3. ALIMTA [Suspect]
     Active Substance: PEMETREXED DISODIUM
     Indication: Lung adenocarcinoma
     Dosage: 1 DF, CYCLIC (FIRST COURSE)
     Route: 042
     Dates: start: 20230623, end: 20230623
  4. ALIMTA [Suspect]
     Active Substance: PEMETREXED DISODIUM
     Dosage: 1 DF, CYCLIC (SECOND COURSE)
     Route: 042
     Dates: start: 20230718, end: 20230718
  5. KEYTRUDA [Suspect]
     Active Substance: PEMBROLIZUMAB
     Indication: Lung adenocarcinoma
     Dosage: 1 DF, CYCLIC (FIRST COURSE)
     Route: 042
     Dates: start: 20230623, end: 20230623
  6. KEYTRUDA [Suspect]
     Active Substance: PEMBROLIZUMAB
     Dosage: 1 DF, CYCLIC (SECOND COURSE)
     Route: 042
     Dates: start: 20230718, end: 20230718
  7. LORAZEPAM [Concomitant]
     Active Substance: LORAZEPAM
     Indication: Anxiety
     Dosage: 0.5 MG, 1X/DAY
     Route: 048
  8. FOLIC ACID [Concomitant]
     Active Substance: FOLIC ACID
     Indication: Vitamin supplementation
     Dosage: 0.4 MG, 1X/DAY
     Route: 048
  9. GLYCOPYRRONIUM\INDACATEROL [Concomitant]
     Active Substance: GLYCOPYRRONIUM\INDACATEROL
     Indication: Anxiety
     Dosage: 1 DF, 1X/DAY
     Route: 055

REACTIONS (4)
  - Acute kidney injury [Not Recovered/Not Resolved]
  - Renal arteritis [Unknown]
  - Kidney fibrosis [Unknown]
  - Off label use [Unknown]

NARRATIVE: CASE EVENT DATE: 20230623
